FAERS Safety Report 8452034-8 (Version None)
Quarter: 2012Q2

REPORT INFORMATION
  Report Type: 
  Country: None (occurrence: None)
  Receive Date: 20120323
  Receipt Date: 20111019
  Transmission Date: 20120825
  Serious: Yes (Hospitalization)
  Sender: FDA-Public Use
  Company Number: 163-21880-11102130

PATIENT
  Age: 80 Year
  Sex: Male

DRUGS (9)
  1. ATIVAN [Concomitant]
  2. AVODART [Concomitant]
  3. LEXAPRO [Concomitant]
  4. LEVAQUIN [Concomitant]
  5. REVLIMID [Suspect]
     Indication: MULTIPLE MYELOMA
     Dosage: 10 MG, 21, PO
     Route: 048
     Dates: start: 20110826
  6. ALBUTEROL SULFATE [Concomitant]
  7. ZITHROMAX [Concomitant]
  8. UROXATRAL [Concomitant]
  9. SPIRIVA [Concomitant]

REACTIONS (1)
  - RENAL IMPAIRMENT [None]
